FAERS Safety Report 8014797-5 (Version None)
Quarter: 2011Q4

REPORT INFORMATION
  Report Type: 
  Country: None (occurrence: None)
  Receive Date: 20111229
  Receipt Date: 20111220
  Transmission Date: 20120403
  Serious: Yes (Hospitalization, Other)
  Sender: FDA-Public Use
  Company Number: JP-PFIZER INC-2011314946

PATIENT
  Age: 47 Year
  Sex: Female

DRUGS (1)
  1. CELECOXIB [Suspect]
     Dosage: 100 MG, UNK
     Route: 048
     Dates: end: 20111216

REACTIONS (1)
  - TOXIC SKIN ERUPTION [None]
